FAERS Safety Report 8374886-2 (Version None)
Quarter: 2012Q2

REPORT INFORMATION
  Report Type: 
  Country: None (occurrence: None)
  Receive Date: 20120521
  Receipt Date: 20120410
  Transmission Date: 20120825
  Serious: No
  Sender: FDA-Public Use
  Company Number: US-PFIZER INC-2012121233

PATIENT
  Sex: Female
  Weight: 72.562 kg

DRUGS (2)
  1. XALATAN [Suspect]
     Indication: GLAUCOMA
     Dosage: 1 GTT (IN EACH EYE), 1X/DAY
     Route: 047
     Dates: start: 20101201
  2. ZIOPTAN [Suspect]
     Dosage: UNK
     Dates: end: 20120301

REACTIONS (7)
  - EYELID OEDEMA [None]
  - OCULAR HYPERAEMIA [None]
  - EYE INFECTION [None]
  - HEADACHE [None]
  - EYE IRRITATION [None]
  - GROWTH OF EYELASHES [None]
  - BLEPHAROSPASM [None]
